FAERS Safety Report 22609864 (Version 1)
Quarter: 2023Q2

REPORT INFORMATION
  Report Type: Spontaneous
  Country: IE (occurrence: IE)
  Receive Date: 20230616
  Receipt Date: 20230616
  Transmission Date: 20230722
  Serious: Yes (Other)
  Sender: FDA-Public Use
  Company Number: IE-SUN PHARMACEUTICAL INDUSTRIES LTD-2023RR-394400

PATIENT
  Age: 49 Year
  Sex: Male

DRUGS (7)
  1. CLARITHROMYCIN [Suspect]
     Active Substance: CLARITHROMYCIN
     Indication: Folliculitis
     Dosage: UNK
     Route: 065
  2. PREDNISOLONE [Suspect]
     Active Substance: PREDNISOLONE
     Indication: Folliculitis
     Dosage: HIGH-DOSE
     Route: 065
  3. TRIMETHOPRIM [Suspect]
     Active Substance: TRIMETHOPRIM
     Indication: Folliculitis
     Dosage: UNK
     Route: 065
  4. CLINDAMYCIN [Suspect]
     Active Substance: CLINDAMYCIN
     Indication: Folliculitis
     Dosage: UNK
     Route: 065
  5. LYMECYCLINE [Suspect]
     Active Substance: LYMECYCLINE
     Indication: Folliculitis
     Dosage: UNK
     Route: 065
  6. PEMBROLIZUMAB [Concomitant]
     Active Substance: PEMBROLIZUMAB
     Indication: Metastatic malignant melanoma
     Dosage: 22 CYCLES
     Route: 065
  7. ISOTRETINOIN [Concomitant]
     Active Substance: ISOTRETINOIN
     Indication: Folliculitis
     Dosage: UNK
     Route: 048

REACTIONS (1)
  - Drug ineffective [Unknown]
